FAERS Safety Report 20750541 (Version 7)
Quarter: 2022Q4

REPORT INFORMATION
  Report Type: Report from Study
  Country: DE (occurrence: DE)
  Receive Date: 20220426
  Receipt Date: 20221124
  Transmission Date: 20230112
  Serious: Yes (Life-Threatening, Other)
  Sender: FDA-Public Use
  Company Number: DE-IPSEN Group, Research and Development-2021-25393

PATIENT
  Age: 41 Year
  Sex: Male
  Weight: 97 kg

DRUGS (31)
  1. NIVOLUMAB [Suspect]
     Active Substance: NIVOLUMAB
     Indication: Renal cell carcinoma
     Dosage: 240 MG, UNK
     Route: 042
     Dates: start: 20211015
  2. NIVOLUMAB [Suspect]
     Active Substance: NIVOLUMAB
     Dosage: 240 MG, UNK
     Route: 042
     Dates: start: 20211112
  3. NIVOLUMAB [Suspect]
     Active Substance: NIVOLUMAB
     Dosage: 240 MG, UNK
     Route: 042
     Dates: start: 20210917
  4. NIVOLUMAB [Suspect]
     Active Substance: NIVOLUMAB
     Dosage: 240 MG, UNK
     Route: 042
     Dates: start: 20220729
  5. NIVOLUMAB [Suspect]
     Active Substance: NIVOLUMAB
     Dosage: 240 MG, UNK
     Route: 042
     Dates: start: 20220114
  6. NIVOLUMAB [Suspect]
     Active Substance: NIVOLUMAB
     Dosage: 240 MG, UNK
     Route: 042
     Dates: start: 20211227
  7. NIVOLUMAB [Suspect]
     Active Substance: NIVOLUMAB
     Dosage: 240 MG, UNK
     Route: 042
     Dates: start: 20220311
  8. NIVOLUMAB [Suspect]
     Active Substance: NIVOLUMAB
     Dosage: 240 MG, UNK
     Route: 042
     Dates: start: 20220701
  9. NIVOLUMAB [Suspect]
     Active Substance: NIVOLUMAB
     Dosage: 240 MG, UNK
     Route: 042
     Dates: start: 20220715
  10. NIVOLUMAB [Suspect]
     Active Substance: NIVOLUMAB
     Dosage: 240 MG, UNK
     Route: 042
     Dates: start: 20220520
  11. NIVOLUMAB [Suspect]
     Active Substance: NIVOLUMAB
     Dosage: 240 MG, UNK
     Route: 042
     Dates: start: 20220617
  12. NIVOLUMAB [Suspect]
     Active Substance: NIVOLUMAB
     Dosage: 240 MG, UNK
     Route: 042
     Dates: start: 20220422
  13. NIVOLUMAB [Suspect]
     Active Substance: NIVOLUMAB
     Dosage: 240 MG, UNK
     Route: 042
     Dates: start: 20220211
  14. NIVOLUMAB [Suspect]
     Active Substance: NIVOLUMAB
     Dosage: 240 MG, UNK
     Route: 042
     Dates: start: 20211126
  15. NIVOLUMAB [Suspect]
     Active Substance: NIVOLUMAB
     Dosage: 240 MG, UNK
     Route: 042
     Dates: start: 20210903
  16. NIVOLUMAB [Suspect]
     Active Substance: NIVOLUMAB
     Dosage: 240 MG, UNK
     Route: 042
     Dates: start: 20211029
  17. NIVOLUMAB [Suspect]
     Active Substance: NIVOLUMAB
     Dosage: 240 MG, UNK
     Route: 042
     Dates: start: 20211001
  18. NIVOLUMAB [Suspect]
     Active Substance: NIVOLUMAB
     Dosage: 240 MG, UNK
     Route: 042
     Dates: start: 20211210
  19. NIVOLUMAB [Suspect]
     Active Substance: NIVOLUMAB
     Dosage: 240 MG, UNK
     Route: 042
     Dates: start: 20220408
  20. NIVOLUMAB [Suspect]
     Active Substance: NIVOLUMAB
     Dosage: 240 MG, UNK
     Route: 042
     Dates: start: 20220506
  21. NIVOLUMAB [Suspect]
     Active Substance: NIVOLUMAB
     Dosage: 240 MG, UNK
     Route: 042
     Dates: start: 20220225
  22. NIVOLUMAB [Suspect]
     Active Substance: NIVOLUMAB
     Dosage: 240 MG, UNK
     Route: 042
     Dates: start: 20220603
  23. NIVOLUMAB [Suspect]
     Active Substance: NIVOLUMAB
     Dosage: 240 MG, UNK
     Route: 042
     Dates: start: 20210820
  24. NIVOLUMAB [Suspect]
     Active Substance: NIVOLUMAB
     Dosage: 240 MG, UNK
     Route: 042
     Dates: start: 20220128
  25. NIVOLUMAB [Suspect]
     Active Substance: NIVOLUMAB
     Dosage: 240 MG, UNK
     Route: 042
     Dates: start: 20220908
  26. NIVOLUMAB [Suspect]
     Active Substance: NIVOLUMAB
     Dosage: 240 MG, UNK
     Route: 042
     Dates: start: 20220826
  27. NIVOLUMAB [Suspect]
     Active Substance: NIVOLUMAB
     Dosage: 240 MG, UNK
     Route: 042
     Dates: start: 20220923
  28. CABOZANTINIB [Suspect]
     Active Substance: CABOZANTINIB
     Indication: Renal cell carcinoma
     Dosage: 40 MG, DAILY
     Route: 048
     Dates: start: 20210820, end: 20220311
  29. CABOZANTINIB [Suspect]
     Active Substance: CABOZANTINIB
     Dosage: 20 MG, DAILY
     Route: 048
     Dates: start: 20220312, end: 20221006
  30. CABOZANTINIB [Suspect]
     Active Substance: CABOZANTINIB
     Dosage: 30 MG, DAILY
     Route: 048
     Dates: start: 20221007, end: 20221104
  31. CABOZANTINIB [Suspect]
     Active Substance: CABOZANTINIB
     Dosage: 20 MG, DAILY
     Route: 048
     Dates: start: 20221112

REACTIONS (16)
  - Weight decreased [Unknown]
  - Diarrhoea [Unknown]
  - Breath odour [Recovered/Resolved]
  - Cachexia [Unknown]
  - Blood thyroid stimulating hormone increased [Unknown]
  - Decreased appetite [Unknown]
  - Alanine aminotransferase increased [Unknown]
  - Hypothyroidism [Unknown]
  - Intercostal neuralgia [Unknown]
  - Bone pain [Recovered/Resolved]
  - Dysgeusia [Unknown]
  - Stomatitis [Unknown]
  - Neutrophil count decreased [Unknown]
  - Coronavirus infection [Recovered/Resolved]
  - Malignant neoplasm progression [Unknown]
  - Neutropenia [Recovered/Resolved]

NARRATIVE: CASE EVENT DATE: 20211001
